FAERS Safety Report 16173424 (Version 1)
Quarter: 2019Q2

REPORT INFORMATION
  Report Type: Spontaneous
  Country: DE (occurrence: DE)
  Receive Date: 20190409
  Receipt Date: 20190409
  Transmission Date: 20190711
  Serious: Yes (Hospitalization, Other)
  Sender: FDA-Public Use
  Company Number: DE-TEVA-2019-DE-1033936

PATIENT
  Age: 76 Year
  Sex: Male

DRUGS (4)
  1. AMLODIPIN [Suspect]
     Active Substance: AMLODIPINE BESYLATE
     Route: 065
  2. METFORMIN [Concomitant]
     Active Substance: METFORMIN HYDROCHLORIDE
     Indication: DIABETES MELLITUS
  3. TELMISARTAN HEUMANN [Interacting]
     Active Substance: TELMISARTAN
     Route: 065
  4. METOPROLOL. [Interacting]
     Active Substance: METOPROLOL
     Route: 065

REACTIONS (5)
  - Myalgia [Unknown]
  - Loss of consciousness [Unknown]
  - Drug interaction [Unknown]
  - Muscle spasms [Unknown]
  - Nausea [Unknown]

NARRATIVE: CASE EVENT DATE: 20180318
